FAERS Safety Report 7952310-9 (Version None)
Quarter: 2011Q4

REPORT INFORMATION
  Report Type: 
  Country: None (occurrence: None)
  Receive Date: 20111201
  Receipt Date: 20111122
  Transmission Date: 20120403
  Serious: Yes (Death, Hospitalization)
  Sender: FDA-Public Use
  Company Number: US-ACTELION-A-US2011-57270

PATIENT

DRUGS (10)
  1. REVATIO [Concomitant]
  2. PRILOSEC [Concomitant]
  3. POTASSIUM CHLORIDE [Concomitant]
  4. LASIX [Concomitant]
  5. LEVOXYL [Concomitant]
  6. ASPIRIN [Concomitant]
  7. OXYGEN [Concomitant]
  8. TRACLEER [Suspect]
     Indication: PULMONARY ARTERIAL HYPERTENSION
     Dosage: 125 MG, BID
     Route: 048
     Dates: start: 20051011, end: 20111104
  9. AMIODARONE HCL [Concomitant]
  10. FOLIC ACID [Concomitant]

REACTIONS (10)
  - PNEUMONIA ASPIRATION [None]
  - OXYGEN SATURATION DECREASED [None]
  - DYSPNOEA [None]
  - CYANOSIS [None]
  - DEATH [None]
  - COUGH [None]
  - RESPIRATORY DISTRESS [None]
  - HAEMOPTYSIS [None]
  - EISENMENGER'S SYNDROME [None]
  - CHEST PAIN [None]
